FAERS Safety Report 9506467 (Version 2)
Quarter: 2013Q4

REPORT INFORMATION
  Report Type: Spontaneous
  Country: JP (occurrence: JP)
  Receive Date: 20130906
  Receipt Date: 20131203
  Transmission Date: 20140711
  Serious: Yes (Hospitalization)
  Sender: FDA-Public Use
  Company Number: PHHY2013JP098024

PATIENT
  Age: 58 Year
  Sex: Female
  Weight: 48 kg

DRUGS (3)
  1. TEGRETOL [Suspect]
     Indication: TRIGEMINAL NEURALGIA
     Dosage: 100 MG, DAILY
     Route: 048
     Dates: start: 20130815, end: 20130821
  2. CARBAMAZEPINE AMEL [Suspect]
     Indication: TRIGEMINAL NEURALGIA
     Dosage: 200 MG, DAILY
     Route: 048
     Dates: start: 20130726, end: 20130806
  3. CARBAMAZEPINE AMEL [Suspect]
     Dosage: 400 MG, DAILY
     Route: 048
     Dates: start: 20130807

REACTIONS (7)
  - Liver disorder [Unknown]
  - Drug reaction with eosinophilia and systemic symptoms [Recovering/Resolving]
  - Generalised erythema [Recovering/Resolving]
  - Oral mucosal eruption [Recovering/Resolving]
  - Face oedema [Recovering/Resolving]
  - Pruritus [Recovering/Resolving]
  - Drug eruption [Recovering/Resolving]
